FAERS Safety Report 9810416 (Version 3)
Quarter: 2014Q1

REPORT INFORMATION
  Report Type: Not Available
  Country: US (occurrence: US)
  Receive Date: 20140110
  Receipt Date: 20140114
  Transmission Date: 20141002
  Serious: Yes (Death, Hospitalization)
  Sender: FDA-Public Use
  Company Number: US-ONYX-2013-1679

PATIENT
  Age: 58 Year
  Sex: Female

DRUGS (9)
  1. KYPROLIS [Suspect]
     Indication: PLASMA CELL MYELOMA
     Route: 042
     Dates: start: 20131003
  2. OXYCODONE [Concomitant]
     Indication: PAIN
  3. AMBIEN PRN [Concomitant]
     Indication: SLEEP DISORDER
  4. SODIUM BICARB [Concomitant]
     Indication: RENAL FAILURE
  5. PAXIL [Concomitant]
     Indication: DEPRESSION
  6. PROPRANOLOL [Concomitant]
     Indication: HYPERTENSION
  7. ACYCLOVIR [Concomitant]
     Indication: PROPHYLAXIS
  8. VITAMIN D3 [Concomitant]
     Indication: RENAL FAILURE
  9. ASA [Concomitant]
     Indication: PROPHYLAXIS

REACTIONS (3)
  - Plasma cell myeloma [Fatal]
  - Renal failure [Unknown]
  - Fatigue [Unknown]
